FAERS Safety Report 5590674-4 (Version None)
Quarter: 2008Q1

REPORT INFORMATION
  Report Type: 
  Country: None (occurrence: None)
  Receive Date: 20080110
  Receipt Date: 20080102
  Transmission Date: 20080703
  Serious: Yes (Hospitalization)
  Sender: FDA-Public Use
  Company Number: 2008000205

PATIENT
  Age: 27 Year
  Sex: Male
  Weight: 77.1115 kg

DRUGS (1)
  1. BENGAY PAIN RELIEVING PATCH (MENTHOL) [Suspect]
     Indication: PAIN IN EXTREMITY
     Dosage: 1 PATCH ONCE, TRANSDERMAL
     Route: 062
     Dates: start: 20071205, end: 20071205

REACTIONS (5)
  - APPLICATION SITE BURN [None]
  - APPLICATION SITE SCAB [None]
  - APPLICATION SITE VESICLES [None]
  - BURNS SECOND DEGREE [None]
  - DRUG INEFFECTIVE [None]
